FAERS Safety Report 13843741 (Version 1)
Quarter: 2017Q3

REPORT INFORMATION
  Report Type: Spontaneous
  Country: FR (occurrence: FR)
  Receive Date: 20170808
  Receipt Date: 20170808
  Transmission Date: 20171127
  Serious: Yes (Hospitalization)
  Sender: FDA-Public Use
  Company Number: FR-SA-2017SA142028

PATIENT
  Age: 61 Year
  Sex: Male

DRUGS (11)
  1. LANTUS [Concomitant]
     Active Substance: INSULIN GLARGINE
  2. AMLODIPINE [Concomitant]
     Active Substance: AMLODIPINE BESYLATE
  3. OFLOCET [Suspect]
     Active Substance: OFLOXACIN
     Indication: OSTEITIS
     Dosage: FORM-FILM COATED DIVISIBLE TABLET
     Route: 048
     Dates: start: 20170706, end: 20170709
  4. NOVORAPID [Concomitant]
     Active Substance: INSULIN ASPART
  5. ORBENINE [Suspect]
     Active Substance: CLOXACILLIN SODIUM
     Indication: INFECTION
     Route: 048
     Dates: start: 20170626, end: 20170706
  6. BISOPROLOL [Concomitant]
     Active Substance: BISOPROLOL
  7. KARDEGIC [Concomitant]
     Active Substance: ASPIRIN LYSINE
  8. RIFADINE [Suspect]
     Active Substance: RIFAMPIN
     Indication: OSTEITIS
     Route: 048
     Dates: start: 20170706, end: 20170709
  9. RABEPRAZOLE [Concomitant]
     Active Substance: RABEPRAZOLE
  10. ATORVASTATIN [Concomitant]
     Active Substance: ATORVASTATIN
  11. KAYEXALATE [Concomitant]
     Active Substance: SODIUM POLYSTYRENE SULFONATE

REACTIONS (2)
  - Thrombocytopenic purpura [Recovered/Resolved]
  - Angina bullosa haemorrhagica [Recovered/Resolved]

NARRATIVE: CASE EVENT DATE: 201707
